FAERS Safety Report 10678243 (Version 3)
Quarter: 2015Q1

REPORT INFORMATION
  Report Type: Spontaneous
  Country: JP (occurrence: JP)
  Receive Date: 20141229
  Receipt Date: 20150219
  Transmission Date: 20150720
  Serious: Yes (Hospitalization)
  Sender: FDA-Public Use
  Company Number: PHHY2014JP169127

PATIENT
  Age: 78 Year
  Sex: Female

DRUGS (2)
  1. BISPHONAL [Concomitant]
     Active Substance: INCADRONATE DISODIUM
     Indication: PRODUCT USED FOR UNKNOWN INDICATION
     Dosage: UNK
     Route: 065
     Dates: start: 200605, end: 201008
  2. ZOMETA [Suspect]
     Active Substance: ZOLEDRONIC ACID
     Indication: PLASMA CELL MYELOMA
     Dosage: 5 MG, UNK
     Route: 041
     Dates: start: 201001, end: 201008

REACTIONS (6)
  - Gingival swelling [Unknown]
  - Pain in jaw [Unknown]
  - Hypoaesthesia [Not Recovered/Not Resolved]
  - Bone marrow necrosis [Unknown]
  - Osteonecrosis of jaw [Recovered/Resolved]
  - Purulent discharge [Unknown]

NARRATIVE: CASE EVENT DATE: 201011
